FAERS Safety Report 11394130 (Version 1)
Quarter: 2015Q3

REPORT INFORMATION
  Report Type: Other
  Country: JP (occurrence: JP)
  Receive Date: 20150819
  Receipt Date: 20150819
  Transmission Date: 20151125
  Serious: Yes (Hospitalization)
  Sender: FDA-Public Use
  Company Number: JP-ACTELION-A-CH2015-122455

PATIENT
  Age: 38 Month
  Sex: Male

DRUGS (5)
  1. BERAPROST [Concomitant]
     Active Substance: BERAPROST
  2. TRACLEER [Suspect]
     Active Substance: BOSENTAN
     Indication: PULMONARY HYPERTENSION
     Dosage: UNK
     Route: 048
  3. SILDENAFIL. [Concomitant]
     Active Substance: SILDENAFIL
  4. OXYGEN. [Concomitant]
     Active Substance: OXYGEN
  5. EPOPROSTENOL ACT [Suspect]
     Active Substance: EPOPROSTENOL
     Indication: PULMONARY HYPERTENSION
     Dosage: 11 NG/KG, PER MIN
     Route: 042

REACTIONS (4)
  - Lower respiratory tract infection [Unknown]
  - Cardiac failure congestive [Unknown]
  - Upper respiratory tract infection [Unknown]
  - Respiratory distress [Unknown]
